FAERS Safety Report 7982833-8 (Version None)
Quarter: 2011Q4

REPORT INFORMATION
  Report Type: 
  Country: None (occurrence: None)
  Receive Date: 20111215
  Receipt Date: 20111207
  Transmission Date: 20120403
  Serious: Yes (Other)
  Sender: FDA-Public Use
  Company Number: CH-BAYER-2011-113471

PATIENT
  Sex: Female
  Weight: 90 kg

DRUGS (2)
  1. MIRENA [Suspect]
     Indication: MENORRHAGIA
     Dosage: UNK
     Route: 015
     Dates: start: 20101223
  2. ACETAMINOPHEN [Concomitant]
     Dosage: UNK UNK, PRN

REACTIONS (2)
  - ACROCHORDON [None]
  - SKIN HYPERPIGMENTATION [None]
